FAERS Safety Report 14557046 (Version 1)
Quarter: 2018Q1

REPORT INFORMATION
  Report Type: Spontaneous
  Country: US (occurrence: US)
  Receive Date: 20180221
  Receipt Date: 20180221
  Transmission Date: 20180509
  Serious: No
  Sender: FDA-Public Use
  Company Number: US-ENDO PHARMACEUTICALS INC-2017-004067

PATIENT
  Sex: Female

DRUGS (3)
  1. BARIACTIV IRON, VITAMIN C [Suspect]
     Active Substance: ASCORBIC ACID\IRON
     Indication: METABOLIC SURGERY
     Dosage: UNK, AS DIRECTED, UNKNOWN
     Route: 065
     Dates: start: 2017
  2. NASCOBAL [Suspect]
     Active Substance: CYANOCOBALAMIN
     Indication: METABOLIC SURGERY
     Dosage: UNK, AS DIRECTED, UNKNOWN
     Route: 065
     Dates: start: 2017
  3. BARIACTIV MULTIVITAMIN [Suspect]
     Active Substance: VITAMINS
     Indication: METABOLIC SURGERY
     Dosage: UNK, AS DIRECTED, UNKNOWN
     Dates: start: 2017

REACTIONS (1)
  - Urticaria [Recovered/Resolved]

NARRATIVE: CASE EVENT DATE: 2017
